FAERS Safety Report 5016772-1 (Version None)
Quarter: 2006Q2

REPORT INFORMATION
  Report Type: 
  Country: None (occurrence: None)
  Receive Date: 20060602
  Receipt Date: 20060116
  Transmission Date: 20061013
  Serious: Yes (Life-Threatening)
  Sender: FDA-Public Use
  Company Number: FR-SANOFI-SYNTHELABO-F01200600132

PATIENT
  Sex: Male

DRUGS (18)
  1. LEUCOVORIN [Suspect]
     Route: 042
  2. FLUOROURACIL [Suspect]
     Route: 042
  3. OXALIPLATIN [Suspect]
     Indication: OESOPHAGEAL CARCINOMA
     Route: 042
  4. RADIOTHERAPY [Concomitant]
     Indication: OESOPHAGEAL CARCINOMA
     Dosage: TOTAL DOSE OF FRACTION ADMINISTERED BEFORE SAE: 50 GY
     Route: 050
     Dates: start: 20051114, end: 20051216
  5. GRANOCYTES [Concomitant]
     Indication: NEUTROPENIA
     Route: 042
     Dates: start: 20051228, end: 20060108
  6. ARANESP [Concomitant]
     Indication: ANAEMIA
     Route: 058
     Dates: start: 20051230, end: 20060101
  7. AXEPIM [Concomitant]
     Indication: INFECTION PROPHYLAXIS
     Route: 042
     Dates: start: 20051201, end: 20060101
  8. FORLAX [Concomitant]
     Indication: CONSTIPATION
     Route: 048
     Dates: start: 20051218, end: 20060101
  9. TRIFLUCAN [Concomitant]
     Indication: INFECTION PROPHYLAXIS
     Route: 048
     Dates: start: 20051212, end: 20060201
  10. VOLUVEN [Concomitant]
     Indication: PROPHYLAXIS
     Route: 042
     Dates: start: 20060101, end: 20060103
  11. DIANTALVIC [Concomitant]
     Indication: OESOPHAGEAL PAIN
     Route: 048
     Dates: start: 20051231, end: 20060102
  12. ATARAX [Concomitant]
     Indication: INSOMNIA
     Route: 048
     Dates: start: 20051226, end: 20060201
  13. ACTRAPID [Concomitant]
     Indication: DIABETES MELLITUS
     Route: 058
     Dates: start: 20051128
  14. PRIMPERAN TAB [Concomitant]
     Indication: NAUSEA
     Route: 042
     Dates: start: 20051116, end: 20060201
  15. NISISCO [Concomitant]
     Indication: HYPERTENSION
     Route: 048
  16. ALLOPURINOL [Concomitant]
     Indication: HYPERURICAEMIA
     Route: 048
  17. ZANIDIP [Concomitant]
     Indication: HYPERTENSION
     Route: 048
  18. TAHOR [Concomitant]
     Indication: HYPERCHOLESTEROLAEMIA
     Route: 048

REACTIONS (2)
  - LUNG DISORDER [None]
  - SEPSIS [None]
